FAERS Safety Report 8116353-7 (Version None)
Quarter: 2012Q1

REPORT INFORMATION
  Report Type: 
  Country: None (occurrence: None)
  Receive Date: 20120206
  Receipt Date: 20120202
  Transmission Date: 20120608
  Serious: Yes (Hospitalization)
  Sender: FDA-Public Use
  Company Number: US-GLAXOSMITHKLINE-B0723111A

PATIENT
  Age: 58 Year
  Sex: Female
  Weight: 126.4 kg

DRUGS (9)
  1. AVANDIA [Suspect]
     Indication: DIABETES MELLITUS
     Dosage: 4MG PER DAY
     Route: 048
     Dates: start: 20001102
  2. AVANDAMET [Suspect]
     Indication: DIABETES MELLITUS
     Route: 048
     Dates: start: 20060901
  3. LISINOPRIL [Concomitant]
  4. FOSAMAX [Concomitant]
  5. VERAPAMIL [Concomitant]
  6. VOLTAREN [Concomitant]
  7. GLUCOPHAGE [Concomitant]
  8. SYNTHROID [Concomitant]
  9. DIOVAN [Concomitant]

REACTIONS (1)
  - MYOCARDIAL INFARCTION [None]
